FAERS Safety Report 6894163-6 (Version None)
Quarter: 2010Q3

REPORT INFORMATION
  Report Type: 
  Country: None (occurrence: None)
  Receive Date: 20100728
  Receipt Date: 20100713
  Transmission Date: 20110219
  Serious: Yes (Hospitalization)
  Sender: FDA-Public Use
  Company Number: AUR-APL-2010-01784

PATIENT
  Age: 68 Year
  Sex: Male
  Weight: 94 kg

DRUGS (4)
  1. MIRTAZAPINE [Suspect]
     Indication: DEPRESSION
     Dosage: 30 MG, DAILY, ORAL
     Route: 048
     Dates: start: 20080301, end: 20100413
  2. TREVILOR 75 [Suspect]
     Indication: DEPRESSION
     Dosage: 75MG, DAILY, ORAL
     Route: 048
     Dates: start: 20080901, end: 20100413
  3. BISOPROLOL [Concomitant]
  4. THRONAJOD [Concomitant]

REACTIONS (4)
  - DRUG TOXICITY [None]
  - FAECES DISCOLOURED [None]
  - JAUNDICE [None]
  - LIVER DISORDER [None]
